FAERS Safety Report 14438543 (Version 5)
Quarter: 2018Q1

REPORT INFORMATION
  Report Type: Spontaneous
  Country: GB (occurrence: GB)
  Receive Date: 20180125
  Receipt Date: 20180331
  Transmission Date: 20180509
  Serious: Yes (Hospitalization)
  Sender: FDA-Public Use
  Company Number: GB-AUROBINDO-AUR-APL-2018-002776

PATIENT
  Age: 58 Year
  Sex: Male

DRUGS (86)
  1. METFORMIN [Concomitant]
     Active Substance: METFORMIN HYDROCHLORIDE
     Dosage: ()
     Route: 065
  2. ASPIRIN                            /00002701/ [Concomitant]
     Active Substance: ASPIRIN
     Dosage: ()
     Route: 065
  3. ASPIRIN                            /00002701/ [Concomitant]
     Active Substance: ASPIRIN
     Dosage: ()
     Route: 065
  4. ASPIRIN                            /00002701/ [Concomitant]
     Active Substance: ASPIRIN
     Dosage: ()
     Route: 065
  5. AMLODIPINE [Concomitant]
     Active Substance: AMLODIPINE BESYLATE
     Indication: PRODUCT USED FOR UNKNOWN INDICATION
     Dosage: ()
     Route: 065
  6. NICOTINE. [Concomitant]
     Active Substance: NICOTINE
     Indication: PRODUCT USED FOR UNKNOWN INDICATION
     Dosage: TRANSDERMAL PATCHES ()
     Route: 062
  7. NICOTINE. [Concomitant]
     Active Substance: NICOTINE
     Dosage: TRANSDERMAL PATCHES ()
     Route: 062
  8. ANORO ELLIPTA [Concomitant]
     Active Substance: UMECLIDINIUM BROMIDE\VILANTEROL TRIFENATATE
     Indication: PRODUCT USED FOR UNKNOWN INDICATION
     Dosage: ()
     Route: 065
     Dates: start: 2017
  9. SILDENAFIL. [Concomitant]
     Active Substance: SILDENAFIL
     Indication: PRODUCT USED FOR UNKNOWN INDICATION
     Dosage: ()
     Route: 065
  10. BISOPROLOL [Concomitant]
     Active Substance: BISOPROLOL
     Indication: PRODUCT USED FOR UNKNOWN INDICATION
     Dosage: ()
     Route: 065
  11. GABAPENTIN. [Concomitant]
     Active Substance: GABAPENTIN
     Dosage: ()
     Route: 065
  12. GABAPENTIN. [Concomitant]
     Active Substance: GABAPENTIN
     Dosage: ()
     Route: 065
  13. RAMIPRIL. [Suspect]
     Active Substance: RAMIPRIL
     Indication: HYPERTENSION
     Dosage: 10 MG, UNK
     Route: 048
     Dates: end: 20170629
  14. CIPROFLOXACIN. [Suspect]
     Active Substance: CIPROFLOXACIN
     Indication: OSTEOMYELITIS
     Dosage: 500 MG, QD
     Route: 048
     Dates: start: 20170522, end: 20170616
  15. TARGOCID [Suspect]
     Active Substance: TEICOPLANIN
     Dosage: 800 MG, QD
     Route: 042
     Dates: start: 20170624, end: 20170702
  16. GLICLAZIDE [Concomitant]
     Active Substance: GLICLAZIDE
     Indication: PRODUCT USED FOR UNKNOWN INDICATION
     Dosage: ()
     Route: 065
     Dates: start: 2017
  17. SALBUTAMOL [Concomitant]
     Active Substance: ALBUTEROL
     Indication: PRODUCT USED FOR UNKNOWN INDICATION
     Dosage: ()
     Route: 065
     Dates: start: 2017
  18. SALBUTAMOL [Concomitant]
     Active Substance: ALBUTEROL
     Dosage: ()
     Route: 065
  19. AMITRIPTYLIN [Concomitant]
     Active Substance: AMITRIPTYLINE
     Indication: PRODUCT USED FOR UNKNOWN INDICATION
     Dosage: ()
     Route: 065
     Dates: start: 2017
  20. ASPIRIN                            /00002701/ [Concomitant]
     Active Substance: ASPIRIN
     Dosage: ()
     Route: 065
  21. ATORVASTATIN [Concomitant]
     Active Substance: ATORVASTATIN
     Indication: PRODUCT USED FOR UNKNOWN INDICATION
     Dosage: ()
     Route: 065
     Dates: start: 2017
  22. HUMULIN M3 [Concomitant]
     Active Substance: INSULIN HUMAN
     Dosage: ()
     Route: 065
  23. GABAPENTIN. [Concomitant]
     Active Substance: GABAPENTIN
     Indication: PRODUCT USED FOR UNKNOWN INDICATION
     Dosage: ()
     Route: 065
  24. RAMIPRIL. [Suspect]
     Active Substance: RAMIPRIL
     Dosage: 10 MG, QD
     Route: 048
     Dates: start: 20170629
  25. CIPROFLOXACIN. [Concomitant]
     Active Substance: CIPROFLOXACIN
     Indication: PRODUCT USED FOR UNKNOWN INDICATION
     Dosage: ()
     Route: 065
     Dates: start: 20170522, end: 20170616
  26. CIPROFLOXACIN. [Concomitant]
     Active Substance: CIPROFLOXACIN
     Dosage: ()
     Route: 065
  27. THIAMINE. [Concomitant]
     Active Substance: THIAMINE
     Dosage: ()
     Route: 065
  28. NICOTINE. [Concomitant]
     Active Substance: NICOTINE
     Dosage: TRANSDERMAL PATCHES ()
     Route: 062
  29. NICOTINE. [Concomitant]
     Active Substance: NICOTINE
     Dosage: TRANSDERMAL PATCHES ()
     Route: 062
  30. BISOPROLOL [Concomitant]
     Active Substance: BISOPROLOL
     Dosage: ()
     Route: 065
  31. CIPROFLOXACIN. [Suspect]
     Active Substance: CIPROFLOXACIN
     Dosage: 1100 MG, QD
     Route: 042
     Dates: start: 20170523
  32. AMOXICILLIN. [Suspect]
     Active Substance: AMOXICILLIN
     Indication: OSTEOMYELITIS
     Dosage: ()
     Route: 048
     Dates: start: 20170516
  33. TARGOCID [Suspect]
     Active Substance: TEICOPLANIN
     Indication: OSTEOMYELITIS
     Dosage: 1100 MG, QD
     Route: 042
     Dates: start: 20170523, end: 20170623
  34. SITAGLIPTIN [Concomitant]
     Active Substance: SITAGLIPTIN
     Dosage: ()
     Route: 065
  35. AMITRIPTYLIN [Concomitant]
     Active Substance: AMITRIPTYLINE
     Dosage: ()
     Route: 065
  36. ASPIRIN                            /00002701/ [Concomitant]
     Active Substance: ASPIRIN
     Dosage: ()
     Route: 065
  37. ASPIRIN                            /00002701/ [Concomitant]
     Active Substance: ASPIRIN
     Dosage: ()
     Route: 065
  38. AMLODIPINE [Concomitant]
     Active Substance: AMLODIPINE BESYLATE
     Dosage: ()
     Route: 065
  39. SILDENAFIL. [Concomitant]
     Active Substance: SILDENAFIL
     Dosage: ()
     Route: 065
  40. SILDENAFIL. [Concomitant]
     Active Substance: SILDENAFIL
     Dosage: ()
     Route: 065
  41. TRAMADOL. [Concomitant]
     Active Substance: TRAMADOL
     Dosage: ()
     Route: 065
  42. TRAMADOL. [Concomitant]
     Active Substance: TRAMADOL
     Dosage: UNK ()
     Route: 065
  43. GABAPENTIN. [Concomitant]
     Active Substance: GABAPENTIN
     Dosage: ()
     Route: 065
  44. RAMIPRIL. [Suspect]
     Active Substance: RAMIPRIL
     Dosage: 10 MG, QD
     Route: 048
  45. CIPROFLOXACIN. [Suspect]
     Active Substance: CIPROFLOXACIN
     Dosage: 10 MG, QD
     Route: 048
     Dates: end: 20170629
  46. TARGOCID [Suspect]
     Active Substance: TEICOPLANIN
     Dosage: 800 MG, QD
     Route: 042
     Dates: start: 20170702
  47. METFORMIN [Concomitant]
     Active Substance: METFORMIN HYDROCHLORIDE
     Dosage: ()
     Route: 065
  48. PIROXICAM. [Concomitant]
     Active Substance: PIROXICAM
     Dosage: ()
     Route: 065
  49. ASPIRIN                            /00002701/ [Concomitant]
     Active Substance: ASPIRIN
     Indication: PRODUCT USED FOR UNKNOWN INDICATION
     Dosage: ()
     Route: 065
  50. ASPIRIN                            /00002701/ [Concomitant]
     Active Substance: ASPIRIN
     Dosage: ()
     Route: 065
  51. ASPIRIN                            /00002701/ [Concomitant]
     Active Substance: ASPIRIN
     Dosage: ()
     Route: 065
  52. AMLODIPINE [Concomitant]
     Active Substance: AMLODIPINE BESYLATE
     Dosage: ()
     Route: 065
  53. THIAMINE. [Concomitant]
     Active Substance: THIAMINE
     Indication: PRODUCT USED FOR UNKNOWN INDICATION
     Dosage: ()
     Route: 065
     Dates: start: 2017
  54. TARGOCID [Suspect]
     Active Substance: TEICOPLANIN
     Indication: ARTHRITIS INFECTIVE
     Dosage: 2200 MILLIGRAM DAILY;
     Route: 042
     Dates: start: 20170522, end: 20170522
  55. ASPIRIN                            /00002701/ [Concomitant]
     Active Substance: ASPIRIN
     Dosage: ()
     Route: 065
  56. ASPIRIN                            /00002701/ [Concomitant]
     Active Substance: ASPIRIN
     Dosage: ()
     Route: 065
  57. ASPIRIN                            /00002701/ [Concomitant]
     Active Substance: ASPIRIN
     Dosage: TRANSDERMAL PATCHES ()
     Route: 062
  58. ASPIRIN                            /00002701/ [Concomitant]
     Active Substance: ASPIRIN
     Dosage: ()
     Route: 065
  59. ASPIRIN                            /00002701/ [Concomitant]
     Active Substance: ASPIRIN
     Dosage: ()
     Route: 065
  60. ANORO ELLIPTA [Concomitant]
     Active Substance: UMECLIDINIUM BROMIDE\VILANTEROL TRIFENATATE
     Dosage: ()
     Route: 065
  61. SILDENAFIL. [Concomitant]
     Active Substance: SILDENAFIL
     Dosage: ()
     Route: 065
  62. BISOPROLOL [Concomitant]
     Active Substance: BISOPROLOL
     Dosage: ()
     Route: 065
  63. BISOPROLOL [Concomitant]
     Active Substance: BISOPROLOL
     Dosage: ()
     Route: 065
  64. BISOPROLOL [Concomitant]
     Active Substance: BISOPROLOL
     Dosage: ()
     Route: 065
  65. GABAPENTIN. [Concomitant]
     Active Substance: GABAPENTIN
     Dosage: ()
     Route: 065
  66. SITAGLIPTIN [Concomitant]
     Active Substance: SITAGLIPTIN
     Indication: PRODUCT USED FOR UNKNOWN INDICATION
     Dosage: ()
     Route: 065
  67. SITAGLIPTIN [Concomitant]
     Active Substance: SITAGLIPTIN
     Dosage: ()
     Route: 065
  68. SITAGLIPTIN [Concomitant]
     Active Substance: SITAGLIPTIN
     Dosage: ()
     Route: 065
  69. METFORMIN [Concomitant]
     Active Substance: METFORMIN HYDROCHLORIDE
     Dosage: ()
     Route: 065
  70. PIROXICAM. [Concomitant]
     Active Substance: PIROXICAM
     Indication: PRODUCT USED FOR UNKNOWN INDICATION
     Dosage: ()
     Route: 065
     Dates: start: 2017
  71. ASPIRIN                            /00002701/ [Concomitant]
     Active Substance: ASPIRIN
     Dosage: ()
     Route: 065
  72. ASPIRIN                            /00002701/ [Concomitant]
     Active Substance: ASPIRIN
     Dosage: ()
     Route: 065
  73. ASPIRIN                            /00002701/ [Concomitant]
     Active Substance: ASPIRIN
     Dosage: ()
     Route: 065
  74. ASPIRIN                            /00002701/ [Concomitant]
     Active Substance: ASPIRIN
     Dosage: UNK ()
     Route: 065
  75. AMLODIPINE [Concomitant]
     Active Substance: AMLODIPINE BESYLATE
     Dosage: ()
     Route: 065
  76. HUMULIN M3 [Concomitant]
     Active Substance: INSULIN HUMAN
     Indication: PRODUCT USED FOR UNKNOWN INDICATION
     Dosage: ()
     Route: 065
     Dates: start: 2017
  77. SILDENAFIL. [Concomitant]
     Active Substance: SILDENAFIL
     Dosage: ()
     Route: 065
  78. RAMIPRIL. [Suspect]
     Active Substance: RAMIPRIL
     Dosage: ()
     Route: 065
  79. METFORMIN [Concomitant]
     Active Substance: METFORMIN HYDROCHLORIDE
     Indication: PRODUCT USED FOR UNKNOWN INDICATION
     Dosage: ()
     Route: 065
  80. GLICLAZIDE [Concomitant]
     Active Substance: GLICLAZIDE
     Dosage: ()
     Route: 065
  81. ASPIRIN                            /00002701/ [Concomitant]
     Active Substance: ASPIRIN
     Dosage: ()
     Route: 065
  82. CIPROFLOXACIN. [Concomitant]
     Active Substance: CIPROFLOXACIN
     Dosage: ()
     Route: 065
  83. AMLODIPINE [Concomitant]
     Active Substance: AMLODIPINE BESYLATE
     Dosage: ()
     Route: 065
  84. ATORVASTATIN [Concomitant]
     Active Substance: ATORVASTATIN
     Dosage: ()
     Route: 065
  85. HUMULIN M3 [Concomitant]
     Active Substance: INSULIN HUMAN
     Dosage: ()
     Route: 065
  86. TRAMADOL. [Concomitant]
     Active Substance: TRAMADOL
     Indication: PRODUCT USED FOR UNKNOWN INDICATION
     Dosage: ()
     Route: 065
     Dates: start: 20170419

REACTIONS (5)
  - Platelet count increased [Recovered/Resolved]
  - C-reactive protein increased [Recovered/Resolved]
  - Blood creatinine increased [Recovered/Resolved]
  - Laboratory test abnormal [Not Recovered/Not Resolved]
  - Pyrexia [Recovered/Resolved]

NARRATIVE: CASE EVENT DATE: 20170606
